FAERS Safety Report 23405759 (Version 3)
Quarter: 2024Q3

REPORT INFORMATION
  Report Type: Report from Study
  Country: CA (occurrence: CA)
  Receive Date: 20240116
  Receipt Date: 20240701
  Transmission Date: 20241017
  Serious: Yes (Other)
  Sender: JOHNSON AND JOHNSON
  Company Number: CA-JNJFOC-20240131028

PATIENT
  Age: 87 Year
  Sex: Female
  Weight: 66.284 kg

DRUGS (1)
  1. REMICADE [Suspect]
     Active Substance: INFLIXIMAB
     Indication: Colitis ulcerative
     Dosage: BATCH: 23D106, EXPIRY: 01-JUN-2026?THE PATIENT RECEIVED 23 INFUSION TOTALLY.
     Route: 041
     Dates: start: 20211204

REACTIONS (3)
  - Skin cancer [Not Recovered/Not Resolved]
  - Postoperative wound complication [Unknown]
  - Inappropriate schedule of product administration [Unknown]

NARRATIVE: CASE EVENT DATE: 20231222
